FAERS Safety Report 5078295-3 (Version None)
Quarter: 2006Q3

REPORT INFORMATION
  Report Type: 
  Country: None (occurrence: None)
  Receive Date: 20060811
  Receipt Date: 20060728
  Transmission Date: 20061208
  Serious: Yes (Life-Threatening)
  Sender: FDA-Public Use
  Company Number: JP-MERCK-0608USA00578

PATIENT
  Age: 74 Year
  Sex: Female
  Weight: 43 kg

DRUGS (13)
  1. FOSAMAX [Suspect]
     Indication: OSTEOPOROSIS
     Route: 048
     Dates: start: 20021108, end: 20060724
  2. ARAVA [Suspect]
     Indication: RHEUMATOID ARTHRITIS
     Route: 048
     Dates: start: 20030922, end: 20050414
  3. ARAVA [Suspect]
     Route: 048
     Dates: start: 20030919, end: 20030921
  4. ARAVA [Suspect]
     Route: 048
     Dates: start: 20050514, end: 20050902
  5. ARAVA [Suspect]
     Route: 048
     Dates: start: 20050903, end: 20060724
  6. CALCITRIOL [Concomitant]
     Indication: OSTEOPOROSIS
     Route: 048
  7. FERROMIA [Concomitant]
     Indication: IRON DEFICIENCY ANAEMIA
     Route: 048
     Dates: start: 20020425
  8. GEFANIL [Concomitant]
     Indication: PROPHYLAXIS
     Route: 048
     Dates: start: 20030919
  9. TAKEPRON [Concomitant]
     Indication: PROPHYLAXIS AGAINST GASTROINTESTINAL ULCER
     Route: 048
     Dates: start: 20030215
  10. PREDNISOLONE [Concomitant]
     Indication: INFLAMMATION
     Route: 048
     Dates: start: 20020222
  11. PREDNISOLONE [Concomitant]
     Route: 048
     Dates: start: 20020222
  12. CALCIUM LACTATE [Concomitant]
     Indication: OSTEOPOROSIS
     Route: 048
     Dates: start: 20021108
  13. LOXONIN [Concomitant]
     Indication: INFLAMMATION
     Route: 048
     Dates: start: 20030404

REACTIONS (2)
  - ANOREXIA [None]
  - GASTRIC CANCER [None]
